FAERS Safety Report 6355627-7 (Version None)
Quarter: 2009Q3

REPORT INFORMATION
  Report Type: 
  Country: None (occurrence: None)
  Receive Date: 20090914
  Receipt Date: 20090907
  Transmission Date: 20100115
  Serious: Yes (Death, Hospitalization)
  Sender: FDA-Public Use
  Company Number: AU-MERCK-0909USA00822

PATIENT
  Age: 56 Year
  Sex: Female

DRUGS (2)
  1. ZETIA [Suspect]
     Route: 065
  2. LIPITOR [Suspect]
     Route: 065
     Dates: start: 20050101, end: 20070101

REACTIONS (2)
  - MUSCLE NECROSIS [None]
  - MYALGIA [None]
